FAERS Safety Report 5472626-8 (Version None)
Quarter: 2007Q4

REPORT INFORMATION
  Report Type: 
  Country: None (occurrence: None)
  Receive Date: 20071001
  Receipt Date: 20070529
  Transmission Date: 20080405
  Serious: No
  Sender: FDA-Public Use
  Company Number: US-ASTRAZENECA-2006UW17690

PATIENT
  Sex: Female

DRUGS (8)
  1. ARIMIDEX [Suspect]
     Indication: BREAST CANCER
     Route: 048
     Dates: start: 20060601, end: 20070401
  2. TAMOXIFEN CITRATE [Concomitant]
     Indication: BREAST CANCER
     Route: 048
  3. HYZAAR [Concomitant]
  4. SYNTHROID [Concomitant]
  5. ZANTAC [Concomitant]
  6. VICODIN [Concomitant]
  7. VITAMIN CAP [Concomitant]
  8. OVER THE COUNTER PAIN MEDICATIONS [Concomitant]

REACTIONS (5)
  - ARTHRALGIA [None]
  - COSTOCHONDRITIS [None]
  - HOT FLUSH [None]
  - MOOD ALTERED [None]
  - NAUSEA [None]
